FAERS Safety Report 5381056-9 (Version None)
Quarter: 2007Q3

REPORT INFORMATION
  Report Type: 
  Country: None (occurrence: None)
  Receive Date: 20070706
  Receipt Date: 20070626
  Transmission Date: 20080115
  Serious: Yes (Death, Hospitalization, Other)
  Sender: FDA-Public Use
  Company Number: RO-ABBOTT-07P-135-0372801-00

PATIENT
  Age: 17 Year
  Sex: Male
  Weight: 46 kg

DRUGS (3)
  1. KALETRA [Suspect]
     Indication: HIV INFECTION
     Route: 048
     Dates: start: 20060612, end: 20070531
  2. ABACAVIR SULFATE [Concomitant]
     Indication: HIV INFECTION
     Route: 048
     Dates: start: 20060612, end: 20070531
  3. STAVUDINE [Concomitant]
     Indication: HIV INFECTION
     Route: 048
     Dates: start: 20060612, end: 20070531

REACTIONS (12)
  - ABDOMINAL PAIN UPPER [None]
  - COMA [None]
  - COUGH [None]
  - DYSPHAGIA [None]
  - DYSPNOEA [None]
  - ENCEPHALITIS [None]
  - ENCEPHALOPATHY [None]
  - HEMIPARESIS [None]
  - INCOHERENT [None]
  - LYMPHADENOPATHY [None]
  - MENINGITIS CRYPTOCOCCAL [None]
  - RALES [None]
